FAERS Safety Report 24051250 (Version 2)
Quarter: 2024Q3

REPORT INFORMATION
  Report Type: Spontaneous
  Country: CN (occurrence: CN)
  Receive Date: 20240704
  Receipt Date: 20240709
  Transmission Date: 20241017
  Serious: Yes (Life-Threatening, Hospitalization)
  Sender: PFIZER
  Company Number: CN-MLMSERVICE-20240625-PI111404-00089-2

PATIENT
  Age: 66 Year
  Sex: Male

DRUGS (4)
  1. LINEZOLID [Suspect]
     Active Substance: LINEZOLID
     Indication: Nocardiosis
     Dosage: UNK
     Dates: start: 202112
  2. PIPERACILLIN SODIUM\TAZOBACTAM SODIUM [Suspect]
     Active Substance: PIPERACILLIN SODIUM\TAZOBACTAM SODIUM
     Indication: Klebsiella infection
     Dosage: UNK
     Dates: start: 202112
  3. SULFAMETHOXAZOLE [Suspect]
     Active Substance: SULFAMETHOXAZOLE
     Indication: Nocardiosis
     Dosage: UNK
     Dates: start: 202112
  4. PREDNISONE [Concomitant]
     Active Substance: PREDNISONE
     Indication: Prophylaxis
     Dosage: HIGH DOSE
     Dates: start: 202007

REACTIONS (5)
  - Renal failure [Recovered/Resolved]
  - Hyperkalaemia [Recovered/Resolved]
  - Oliguria [Recovered/Resolved]
  - Off label use [Unknown]
  - Drug effective for unapproved indication [Unknown]

NARRATIVE: CASE EVENT DATE: 20211201
